FAERS Safety Report 9240456 (Version 1)
Quarter: 2013Q2

REPORT INFORMATION
  Report Type: Spontaneous
  Country: US (occurrence: US)
  Receive Date: 20130418
  Receipt Date: 20130418
  Transmission Date: 20140414
  Serious: No
  Sender: FDA-Public Use
  Company Number: US-SANOFI-AVENTIS-2012SA056690

PATIENT
  Age: 78 Year
  Sex: Male

DRUGS (1)
  1. LOVENOX [Suspect]
     Route: 065
     Dates: start: 20120804, end: 20120805

REACTIONS (4)
  - Circadian rhythm sleep disorder [Unknown]
  - Muscular weakness [Unknown]
  - Paraesthesia [Unknown]
  - Confusional state [Unknown]
